FAERS Safety Report 5405290-4 (Version None)
Quarter: 2007Q3

REPORT INFORMATION
  Report Type: 
  Country: None (occurrence: None)
  Receive Date: 20070803
  Receipt Date: 20070726
  Transmission Date: 20080115
  Serious: Yes (Hospitalization)
  Sender: FDA-Public Use
  Company Number: B0473492B

PATIENT
  Age: 51 Year
  Sex: Female

DRUGS (14)
  1. LAPATINIB [Suspect]
     Indication: BREAST CANCER METASTATIC
     Dosage: 1250MG PER DAY
     Route: 048
     Dates: start: 20070321
  2. CAPECITABINE [Suspect]
     Indication: BREAST CANCER METASTATIC
     Dosage: 1500MG PER DAY
     Route: 048
     Dates: start: 20040908
  3. LACTULOSE [Concomitant]
     Dosage: 20ML TWICE PER DAY
     Dates: start: 20070619
  4. DEXAMETHASONE 0.5MG TAB [Concomitant]
     Indication: METASTASES TO CENTRAL NERVOUS SYSTEM
     Dosage: 500MG AT NIGHT
     Route: 048
     Dates: start: 20041124
  5. ENOXAPARIN SODIUM [Concomitant]
     Indication: COAGULOPATHY
     Dosage: 100MG PER DAY
     Dates: start: 20070503
  6. OXYCODONE HCL [Concomitant]
     Indication: ANALGESIA
     Dosage: 5MG PER DAY
     Dates: start: 20070619
  7. ESOMEPRAZOLE MAGNESIUM [Concomitant]
     Indication: GASTROOESOPHAGEAL REFLUX DISEASE
     Dosage: 40MG PER DAY
     Dates: start: 20041109
  8. METHADONE HCL [Concomitant]
     Indication: ANALGESIA
     Dosage: 10MG TWICE PER DAY
  9. CHOLECALCIFEROL [Concomitant]
     Dosage: 25MCG PER DAY
  10. PERINDOPRIL ERBUMINE [Concomitant]
     Indication: HYPERTENSION
     Dosage: 2.5MG PER DAY
     Dates: start: 20040307
  11. TEMAZEPAM [Concomitant]
     Indication: SEDATION
     Dosage: 10MG PER DAY
     Dates: start: 20060518
  12. CEPHALEXIN [Concomitant]
     Indication: INFECTION
     Dosage: 500MG FOUR TIMES PER DAY
     Dates: start: 20070619, end: 20070627
  13. CALCIUM CARBONATE [Concomitant]
     Dosage: 600MG PER DAY
  14. ONDANSETRON [Concomitant]
     Indication: NAUSEA
     Dosage: 4MG THREE TIMES PER DAY
     Dates: start: 20040908

REACTIONS (5)
  - FALL [None]
  - INJURY [None]
  - NAIL INFECTION [None]
  - OSTEOPENIA [None]
  - PUBIC RAMI FRACTURE [None]
